FAERS Safety Report 8713298 (Version 4)
Quarter: 2016Q2

REPORT INFORMATION
  Report Type: Report from Study
  Country: FR (occurrence: FR)
  Receive Date: 20120808
  Receipt Date: 20160516
  Transmission Date: 20160815
  Serious: Yes (Other)
  Sender: FDA-Public Use
  Company Number: FR-TEVA-342449USA

PATIENT
  Age: 69 Year
  Sex: Male

DRUGS (6)
  1. ZELITREX [Concomitant]
     Active Substance: VALACYCLOVIR HYDROCHLORIDE
     Indication: PROPHYLAXIS
     Dates: start: 20120221
  2. LEVACT [Suspect]
     Active Substance: BENDAMUSTINE HYDROCHLORIDE
     Indication: MANTLE CELL LYMPHOMA
     Dosage: 156 MILLIGRAM DAILY; FREQUENCY: D1AND D2/CYCLE
     Route: 041
     Dates: start: 20120221, end: 20120418
  3. DEXAMETHASONE. [Suspect]
     Active Substance: DEXAMETHASONE
     Indication: MANTLE CELL LYMPHOMA
     Dosage: 40 MILLIGRAM DAILY; FREQUENCY: D2/CYCLE
     Route: 041
     Dates: start: 20120222
  4. VELCADE [Suspect]
     Active Substance: BORTEZOMIB
     Indication: MANTLE CELL LYMPHOMA
     Dosage: ONCE DAILY -D1, D4, D8 AND D11 PER CYCLE
     Route: 058
     Dates: start: 20120221, end: 20120427
  5. MABTHERA [Suspect]
     Active Substance: RITUXIMAB
     Indication: MANTLE CELL LYMPHOMA
     Dosage: 650 MILLIGRAM DAILY; FREQUENCY: ONE TIME PER ONE CYCLE. D1/CYCLE
     Route: 041
     Dates: start: 20120221
  6. BACTRIM [Concomitant]
     Active Substance: SULFAMETHOXAZOLE\TRIMETHOPRIM
     Indication: PROPHYLAXIS
     Dates: start: 20120221

REACTIONS (2)
  - Musculoskeletal chest pain [Not Recovered/Not Resolved]
  - Herpes zoster [Recovered/Resolved with Sequelae]

NARRATIVE: CASE EVENT DATE: 20120515
